FAERS Safety Report 16629399 (Version 1)
Quarter: 2019Q3

REPORT INFORMATION
  Report Type: Spontaneous
  Country: CZ (occurrence: CZ)
  Receive Date: 20190725
  Receipt Date: 20190725
  Transmission Date: 20191004
  Serious: Yes (Other)
  Sender: FDA-Public Use
  Company Number: CZ-JNJFOC-20190718280

PATIENT
  Age: 22 Year
  Sex: Female

DRUGS (1)
  1. CILEST [Suspect]
     Active Substance: ETHINYL ESTRADIOL\NORGESTIMATE
     Indication: CONTRACEPTION
     Dosage: ETHINYLESTRADIOL 0.035 - 0.035 - 0 MG; NORGESTIMATE 0.250 - 0.250 - 0 MG
     Route: 048

REACTIONS (2)
  - Cholestasis [Unknown]
  - Portal fibrosis [Unknown]
